FAERS Safety Report 17537019 (Version 2)
Quarter: 2020Q2

REPORT INFORMATION
  Report Type: Report from Study
  Country: IT (occurrence: IT)
  Receive Date: 20200313
  Receipt Date: 20200516
  Transmission Date: 20200713
  Serious: Yes (Hospitalization, Other)
  Sender: FDA-Public Use
  Company Number: IT-ACCORD-175533

PATIENT
  Age: 57 Year
  Sex: Male
  Weight: 0 kg

DRUGS (4)
  1. QUETIAPINE. [Suspect]
     Active Substance: QUETIAPINE
     Indication: INTENTIONAL SELF-INJURY
     Route: 048
     Dates: start: 20191025, end: 20191025
  2. CLOPIXOL 200 MG / ML PROLONGED-RELEASE SOLUTION FOR INJECTION FOR USE [Concomitant]
     Dosage: PROLONGED-RELEASE SOLUTION FOR INJECTION FOR US
     Route: 030
  3. QUETIAPINE FUMARATE. [Suspect]
     Active Substance: QUETIAPINE FUMARATE
     Indication: INTENTIONAL SELF-INJURY
     Route: 048
     Dates: start: 20191025, end: 20191025
  4. PALIPERIDONE/PALIPERIDONE PALMITATE [Suspect]
     Active Substance: PALIPERIDONE
     Indication: INTENTIONAL SELF-INJURY
     Route: 048
     Dates: start: 20191025, end: 20191025

REACTIONS (4)
  - Drug abuse [Unknown]
  - Sopor [Recovering/Resolving]
  - Intentional self-injury [Unknown]
  - Slow speech [Recovering/Resolving]

NARRATIVE: CASE EVENT DATE: 20191025
